FAERS Safety Report 21504094 (Version 1)
Quarter: 2022Q4

REPORT INFORMATION
  Report Type: Spontaneous
  Country: US (occurrence: US)
  Receive Date: 20221025
  Receipt Date: 20221025
  Transmission Date: 20230113
  Serious: No
  Sender: FDA-Public Use
  Company Number: US-MYLANLABS-2022M1110884

PATIENT
  Sex: Female

DRUGS (1)
  1. SEMGLEE (INSULIN GLARGINE-YFGN) [Suspect]
     Active Substance: INSULIN GLARGINE-YFGN
     Indication: Gestational diabetes
     Dosage: 30 INTERNATIONAL UNIT, QD (30 UNITS ONCE A DAY)
     Route: 058

REACTIONS (3)
  - Device defective [Unknown]
  - Device mechanical issue [Unknown]
  - Incorrect dose administered [Unknown]
